FAERS Safety Report 24052423 (Version 1)
Quarter: 2024Q3

REPORT INFORMATION
  Report Type: Report from Study
  Country: US (occurrence: US)
  Receive Date: 20240704
  Receipt Date: 20240704
  Transmission Date: 20241016
  Serious: Yes (Other)
  Sender: ABBVIE
  Company Number: US-ABBVIE-5826069

PATIENT
  Sex: Female

DRUGS (2)
  1. RINVOQ [Suspect]
     Active Substance: UPADACITINIB
     Indication: Crohn^s disease
     Route: 048
     Dates: start: 20240401
  2. ZIAC [Concomitant]
     Active Substance: BISOPROLOL FUMARATE\HYDROCHLOROTHIAZIDE
     Indication: Hypertension
     Dates: start: 20040101

REACTIONS (1)
  - Nephrolithiasis [Unknown]

NARRATIVE: CASE EVENT DATE: 20240101
